FAERS Safety Report 13754044 (Version 4)
Quarter: 2017Q4

REPORT INFORMATION
  Report Type: Spontaneous
  Country: CA (occurrence: CA)
  Receive Date: 20170714
  Receipt Date: 20171215
  Transmission Date: 20180320
  Serious: Yes (Hospitalization, Other)
  Sender: FDA-Public Use
  Company Number: CA-CELLTRION HEALTHCARE HUNGARY KFT-2017CA006090

PATIENT

DRUGS (7)
  1. SODIUM CHLORIDE. [Concomitant]
     Active Substance: SODIUM CHLORIDE
     Dosage: 0.9 %, UNK
     Dates: start: 20170303
  2. IMURAN [Concomitant]
     Active Substance: AZATHIOPRINE
     Dosage: 175 MG, DAILY
     Dates: start: 2005
  3. PREDNISONE. [Concomitant]
     Active Substance: PREDNISONE
     Dosage: 40 MG, UNK
     Route: 065
     Dates: start: 20170306
  4. SALOFALK                           /00000301/ [Concomitant]
     Active Substance: MESALAMINE
     Dosage: 500 MG, DAILY
     Route: 048
     Dates: start: 2005
  5. SALOFALK                           /00000301/ [Concomitant]
     Active Substance: MESALAMINE
     Dosage: 2 G, ENEMA AT BEDTIME AS NEEDED
  6. PREDNISONE. [Concomitant]
     Active Substance: PREDNISONE
     Dosage: 5 MG, (3 X 5 MG TABLETS), DAILY
     Route: 065
  7. INFLECTRA [Suspect]
     Active Substance: INFLIXIMAB-DYYB
     Indication: COLITIS ULCERATIVE
     Dosage: 363 MG, CYCLIC (EVERY 0,2,6, WEEKS THEN EVERY 8 ULCERATIVE WEEKS)
     Route: 042
     Dates: start: 20170503

REACTIONS (14)
  - Fatigue [Unknown]
  - Sensation of foreign body [Recovered/Resolved]
  - Peripheral coldness [Unknown]
  - Throat irritation [Recovered/Resolved]
  - Alopecia [Unknown]
  - Hemiparesis [Unknown]
  - Pain [Unknown]
  - Oropharyngeal pain [Recovering/Resolving]
  - Headache [Unknown]
  - Herpes zoster [Recovering/Resolving]
  - Pollakiuria [Not Recovered/Not Resolved]
  - Muscular weakness [Unknown]
  - Injection site pain [Unknown]
  - Dizziness [Not Recovered/Not Resolved]

NARRATIVE: CASE EVENT DATE: 2017
